FAERS Safety Report 5104279-2 (Version None)
Quarter: 2006Q3

REPORT INFORMATION
  Report Type: 
  Country: None (occurrence: None)
  Receive Date: 20060912
  Receipt Date: 20060912
  Transmission Date: 20061208
  Serious: Yes (Other)
  Sender: FDA-Public Use
  Company Number: None

PATIENT
  Age: 56 Year
  Sex: Male
  Weight: 85.2762 kg

DRUGS (2)
  1. ASPIRIN [Suspect]
     Indication: ANALGESIC EFFECT
     Dosage: 325 MG DAILY PO
     Route: 048
  2. ASPIRIN [Suspect]
     Indication: SELF-MEDICATION
     Dosage: 325 MG DAILY PO
     Route: 048

REACTIONS (6)
  - GASTRIC ULCER [None]
  - GASTROINTESTINAL HAEMORRHAGE [None]
  - HAEMOGLOBIN DECREASED [None]
  - HELICOBACTER PYLORI IDENTIFICATION TEST POSITIVE [None]
  - NODULE [None]
  - PORTAL HYPERTENSIVE GASTROPATHY [None]
